FAERS Safety Report 23687934 (Version 2)
Quarter: 2024Q2

REPORT INFORMATION
  Report Type: Spontaneous
  Country: US (occurrence: US)
  Receive Date: 20240329
  Receipt Date: 20240613
  Transmission Date: 20240716
  Serious: Yes (Death, Other)
  Sender: FDA-Public Use
  Company Number: US-REGENERON PHARMACEUTICALS, INC.-2024-049777

PATIENT
  Sex: Male

DRUGS (2)
  1. EYLEA [Suspect]
     Active Substance: AFLIBERCEPT
     Indication: Neovascular age-related macular degeneration
     Dosage: 2 MG, MONTHLY, INTO RIGHT EYE, FORMULATION: UNKNOWN
     Dates: start: 20190219, end: 20220825
  2. AVASTIN [Concomitant]
     Active Substance: BEVACIZUMAB
     Indication: Neovascular age-related macular degeneration

REACTIONS (1)
  - Death [Fatal]

NARRATIVE: CASE EVENT DATE: 20221226
